FAERS Safety Report 17285517 (Version 4)
Quarter: 2022Q2

REPORT INFORMATION
  Report Type: Spontaneous
  Country: US (occurrence: US)
  Receive Date: 20200117
  Receipt Date: 20220510
  Transmission Date: 20220720
  Serious: Yes (Death)
  Sender: FDA-Public Use
  Company Number: US-VIFOR (INTERNATIONAL) INC.-VIT-2020-00290

PATIENT
  Sex: Male

DRUGS (3)
  1. VELTASSA [Suspect]
     Active Substance: PATIROMER
     Indication: Hyperkalaemia
     Route: 048
     Dates: start: 201904
  2. VELTASSA [Suspect]
     Active Substance: PATIROMER
     Route: 048
     Dates: start: 201904
  3. VELTASSA [Suspect]
     Active Substance: PATIROMER
     Route: 048
     Dates: start: 20190416

REACTIONS (4)
  - Death [Fatal]
  - Coronavirus infection [Unknown]
  - Haemoglobin decreased [Unknown]
  - Constipation [Unknown]

NARRATIVE: CASE EVENT DATE: 20210101
